FAERS Safety Report 8469773-5 (Version None)
Quarter: 2012Q2

REPORT INFORMATION
  Report Type: 
  Country: None (occurrence: None)
  Receive Date: 20120626
  Receipt Date: 20120615
  Transmission Date: 20120825
  Serious: Yes (Hospitalization)
  Sender: FDA-Public Use
  Company Number: JP-MERCK-1206USA03264

PATIENT
  Age: 96 Year
  Sex: Female

DRUGS (6)
  1. VITAMIN B12 [Concomitant]
     Route: 048
     Dates: end: 20111224
  2. FOSAMAX [Suspect]
     Indication: OSTEOPOROSIS
     Route: 048
     Dates: start: 20080101, end: 20111224
  3. NORVASC [Concomitant]
     Indication: HYPERTENSION
     Route: 048
     Dates: end: 20111224
  4. MOBIC [Concomitant]
     Route: 048
     Dates: end: 20111224
  5. OMEPRAZOLE [Concomitant]
     Indication: GASTRITIS
     Route: 048
     Dates: end: 20111224
  6. ONEALFA [Concomitant]
     Indication: OSTEOPOROSIS
     Route: 048
     Dates: end: 20111224

REACTIONS (1)
  - FEMUR FRACTURE [None]
